FAERS Safety Report 6978031-7 (Version None)
Quarter: 2010Q3

REPORT INFORMATION
  Report Type: 
  Country: None (occurrence: None)
  Receive Date: 20100913
  Receipt Date: 20100831
  Transmission Date: 20110219
  Serious: Yes (Hospitalization)
  Sender: FDA-Public Use
  Company Number: US-JNJFOC-20100900997

PATIENT
  Sex: Female
  Weight: 60.78 kg

DRUGS (8)
  1. REMICADE [Suspect]
     Indication: RHEUMATOID ARTHRITIS
     Route: 042
  2. ATENOLOL [Concomitant]
     Indication: MITRAL VALVE PROLAPSE
     Route: 048
  3. PREDNISONE [Concomitant]
     Indication: RHEUMATOID ARTHRITIS
     Route: 048
  4. AMITRIPTYLINE HCL [Concomitant]
     Indication: SLEEP DISORDER
     Route: 048
  5. AMITRIPTYLINE HCL [Concomitant]
     Indication: BACK PAIN
     Route: 048
  6. XANAX [Concomitant]
     Indication: PANIC ATTACK
     Route: 048
  7. DARVOCET-N 100 [Concomitant]
     Indication: PAIN
     Dosage: 2-3 TABLETS/DAY AS NEEDED
     Route: 048
  8. VITAMIN TAB [Concomitant]
     Indication: NUTRITIONAL SUPPORT
     Dosage: DAILY
     Route: 048

REACTIONS (5)
  - ABDOMINAL PAIN [None]
  - DIVERTICULITIS [None]
  - OVARIAN CYST [None]
  - SKIN CANCER [None]
  - SYNCOPE [None]
